FAERS Safety Report 20564197 (Version 1)
Quarter: 2022Q1

REPORT INFORMATION
  Report Type: Spontaneous
  Country: US (occurrence: US)
  Receive Date: 20220308
  Receipt Date: 20220308
  Transmission Date: 20220423
  Serious: Yes (Hospitalization)
  Sender: FDA-Public Use
  Company Number: US-drreddys-LIT/USA/22/0147536

PATIENT
  Age: 19 Year
  Sex: Male

DRUGS (6)
  1. CLOFARABINE [Suspect]
     Active Substance: CLOFARABINE
     Indication: Adult T-cell lymphoma/leukaemia stage III
     Dosage: DOSE ON DAYS 1-5 EVERY 28 DAYS
     Route: 042
  2. FLUCONAZOLE [Suspect]
     Active Substance: FLUCONAZOLE
     Indication: Antifungal prophylaxis
  3. FLUCONAZOLE [Suspect]
     Active Substance: FLUCONAZOLE
     Indication: Adult T-cell lymphoma/leukaemia stage III
  4. MITOXANTRONE [Suspect]
     Active Substance: MITOXANTRONE HYDROCHLORIDE
     Indication: Adult T-cell lymphoma/leukaemia stage III
     Dosage: DOSE ON DAYS 1-5
     Route: 042
  5. CYTARABINE [Suspect]
     Active Substance: CYTARABINE
     Indication: Adult T-cell lymphoma/leukaemia stage III
     Dosage: ON DAYS 1-4, 8-11, 29-32, AND 36-39 CONSOLIDATION THERAPY
     Route: 042
  6. CYTARABINE [Suspect]
     Active Substance: CYTARABINE
     Dosage: 1 G/M2/DOSE ON DAYS 1-4
     Route: 042

REACTIONS (4)
  - Polyomavirus viraemia [Unknown]
  - Febrile neutropenia [Unknown]
  - Myelosuppression [Unknown]
  - Drug ineffective [Unknown]
